FAERS Safety Report 16359605 (Version 9)
Quarter: 2020Q3

REPORT INFORMATION
  Report Type: Other
  Country: CA (occurrence: CA)
  Receive Date: 20190528
  Receipt Date: 20200907
  Transmission Date: 20201102
  Serious: No
  Sender: FDA-Public Use
  Company Number: CA-ROCHE-2117578

PATIENT
  Age: 40 Year
  Sex: Female

DRUGS (8)
  1. ACETAMINOPHEN. [Concomitant]
     Active Substance: ACETAMINOPHEN
     Dosage: 1000 MG PO 30?60 MIN PRIOR TO EACH INFUSION
     Route: 048
     Dates: start: 20180426, end: 20180426
  2. MAGNESIUM [Concomitant]
     Active Substance: MAGNESIUM
  3. METHYLPREDNISOLONE. [Concomitant]
     Active Substance: METHYLPREDNISOLONE
     Dosage: 100 MG IV APPROX 30 MIN PRIOR TO EACH INFUSION
     Route: 042
     Dates: start: 20180426, end: 20180426
  4. OCREVUS [Suspect]
     Active Substance: OCRELIZUMAB
     Dosage: 600 MG IV Q 6 MONTHS
     Route: 042
  5. DIPHENHYDRAMINE. [Concomitant]
     Active Substance: DIPHENHYDRAMINE
     Dosage: 50 MG PO/IV 30?60 MIN PRIOR TO EACH INFUSION
     Dates: start: 20180426, end: 20180426
  6. VITAMIN C [Concomitant]
     Active Substance: ASCORBIC ACID
  7. OCREVUS [Suspect]
     Active Substance: OCRELIZUMAB
     Indication: RELAPSING-REMITTING MULTIPLE SCLEROSIS
     Dosage: 300 MG IV DAY 0 AND DAY 14, 600 MG IV Q 6 MONTHS?17/JUL/2019
     Route: 042
     Dates: start: 20180426
  8. VITAMIN C [Concomitant]
     Active Substance: ASCORBIC ACID

REACTIONS (12)
  - Abdominal distension [Recovering/Resolving]
  - Nausea [Unknown]
  - Lymphocyte count decreased [Unknown]
  - Headache [Recovered/Resolved]
  - Diarrhoea [Recovered/Resolved]
  - Oral herpes [Recovered/Resolved]
  - Fatigue [Recovered/Resolved]
  - Hypoaesthesia [Recovering/Resolving]
  - Infusion related reaction [Recovered/Resolved]
  - Hot flush [Recovering/Resolving]
  - Nasopharyngitis [Recovered/Resolved]
  - Hypotension [Recovered/Resolved]

NARRATIVE: CASE EVENT DATE: 20180426
